FAERS Safety Report 11124138 (Version 2)
Quarter: 2015Q2

REPORT INFORMATION
  Report Type: Spontaneous
  Country: GB (occurrence: GB)
  Receive Date: 20150520
  Receipt Date: 20150520
  Transmission Date: 20150821
  Serious: Yes (Disabling, Other)
  Sender: FDA-Public Use
  Company Number: GB-AUROBINDO-AUR-APL-2015-04346

PATIENT
  Age: 31 Year
  Sex: Male
  Weight: 76.2 kg

DRUGS (1)
  1. NAPROXEN 500MG [Suspect]
     Active Substance: NAPROXEN
     Indication: BACK PAIN
     Dosage: 500 MG, TWO TIMES A DAY
     Route: 048
     Dates: start: 20150419, end: 20150430

REACTIONS (6)
  - Headache [Recovering/Resolving]
  - Miosis [Recovering/Resolving]
  - Tremor [Recovering/Resolving]
  - Hyperhidrosis [Recovering/Resolving]
  - Blindness [Recovering/Resolving]
  - Pupil fixed [Recovering/Resolving]

NARRATIVE: CASE EVENT DATE: 20150429
